FAERS Safety Report 19059631 (Version 2)
Quarter: 2021Q2

REPORT INFORMATION
  Report Type: Spontaneous
  Country: JP (occurrence: JP)
  Receive Date: 20210326
  Receipt Date: 20210401
  Transmission Date: 20210717
  Serious: Yes (Hospitalization, Other)
  Sender: FDA-Public Use
  Company Number: JP-BRISTOL-MYERS SQUIBB COMPANY-BMS-2021-026812

PATIENT
  Age: 9 Decade
  Sex: Male

DRUGS (1)
  1. HYDREA [Suspect]
     Active Substance: HYDROXYUREA
     Indication: MYELODYSPLASTIC SYNDROME
     Dosage: UNK
     Route: 048

REACTIONS (1)
  - Large intestinal ulcer [Recovering/Resolving]
